FAERS Safety Report 11440852 (Version 1)
Quarter: 2015Q3

REPORT INFORMATION
  Report Type: Spontaneous
  Country: US (occurrence: US)
  Receive Date: 20150821
  Receipt Date: 20150821
  Transmission Date: 20151125
  Serious: No
  Sender: FDA-Public Use
  Company Number: US-ELI_LILLY_AND_COMPANY-US200710005298

PATIENT
  Sex: Female

DRUGS (2)
  1. CYMBALTA [Suspect]
     Active Substance: DULOXETINE HYDROCHLORIDE
     Indication: DEPRESSION
     Dosage: 30 MG, EACH MORNING
     Route: 048
     Dates: start: 20071002
  2. HYDROCODONE [Concomitant]
     Active Substance: HYDROCODONE

REACTIONS (7)
  - Impaired driving ability [Recovered/Resolved]
  - Hypotension [Not Recovered/Not Resolved]
  - Feeling of relaxation [Not Recovered/Not Resolved]
  - Asthenia [Not Recovered/Not Resolved]
  - Thinking abnormal [Not Recovered/Not Resolved]
  - Hypokinesia [Not Recovered/Not Resolved]
  - Fatigue [Recovered/Resolved]

NARRATIVE: CASE EVENT DATE: 200710
